FAERS Safety Report 18658415 (Version 1)
Quarter: 2020Q4

REPORT INFORMATION
  Report Type: Spontaneous
  Country: FR (occurrence: FR)
  Receive Date: 20201224
  Receipt Date: 20201224
  Transmission Date: 20210114
  Serious: Yes (Other)
  Sender: FDA-Public Use
  Company Number: FR-TEVA-2020-FR-1862943

PATIENT
  Age: 78 Year
  Sex: Male

DRUGS (5)
  1. STELARA [Concomitant]
     Active Substance: USTEKINUMAB
  2. ESIDREX 12.5 MG [Concomitant]
     Dosage: 1 DOSAGE FORMS DAILY;
  3. RAMIPRIL TEVA SANTE 5 MG [Suspect]
     Active Substance: RAMIPRIL
     Indication: HYPERTENSION
     Route: 065
     Dates: start: 202010
  4. RAMIPRIL TEVA SANTE 5 MG [Suspect]
     Active Substance: RAMIPRIL
     Dosage: 10 MILLIGRAM DAILY; 5 MG IN THE MORNING AND IN THE EVENING
     Route: 065
  5. DILTIAZEM 300 MG [Concomitant]
     Dosage: 1 DOSAGE FORMS DAILY;

REACTIONS (2)
  - Renal artery stenosis [Not Recovered/Not Resolved]
  - Renal impairment [Not Recovered/Not Resolved]

NARRATIVE: CASE EVENT DATE: 20201216
